FAERS Safety Report 20591455 (Version 1)
Quarter: 2022Q1

REPORT INFORMATION
  Report Type: Spontaneous
  Country: US (occurrence: US)
  Receive Date: 20220314
  Receipt Date: 20220314
  Transmission Date: 20220423
  Serious: No
  Sender: FDA-Public Use
  Company Number: US-PFIZER INC-2019183864

PATIENT
  Age: 31 Year
  Sex: Female

DRUGS (3)
  1. XELJANZ [Interacting]
     Active Substance: TOFACITINIB CITRATE
     Dosage: 5 MG
     Dates: start: 20170923
  2. XELJANZ [Interacting]
     Active Substance: TOFACITINIB CITRATE
     Dosage: 5 MG
     Dates: start: 20200820
  3. TEGRETOL [Interacting]
     Active Substance: CARBAMAZEPINE
     Dosage: UNK (TEGRETOL-XR)

REACTIONS (2)
  - Product dose omission issue [Unknown]
  - Drug interaction [Unknown]
